FAERS Safety Report 24717449 (Version 2)
Quarter: 2024Q4

REPORT INFORMATION
  Report Type: Spontaneous
  Country: AT (occurrence: AT)
  Receive Date: 20241210
  Receipt Date: 20241218
  Transmission Date: 20250115
  Serious: Yes (Hospitalization, Other)
  Sender: INSUD PHARMA
  Company Number: AT-EXELTIS PHARMACEUTICAL HOLDING, S.L.-2412AT09298

PATIENT
  Age: 37 Year
  Sex: Female

DRUGS (2)
  1. PROGESTERONE [Suspect]
     Active Substance: PROGESTERONE
     Indication: Intermenstrual bleeding
     Dosage: 200 MILLIGRAM
     Route: 067
     Dates: start: 201909, end: 201910
  2. PROGESTERONE [Suspect]
     Active Substance: PROGESTERONE
     Indication: Pain

REACTIONS (5)
  - Endometrial cancer [Not Recovered/Not Resolved]
  - Product use issue [Unknown]
  - Product use in unapproved indication [Unknown]
  - Heavy menstrual bleeding [Not Recovered/Not Resolved]
  - Abdominal pain [Not Recovered/Not Resolved]

NARRATIVE: CASE EVENT DATE: 20190901
